FAERS Safety Report 4783809-4 (Version None)
Quarter: 2005Q3

REPORT INFORMATION
  Report Type: 
  Country: None (occurrence: None)
  Receive Date: 20050929
  Receipt Date: 20050921
  Transmission Date: 20060218
  Serious: Yes (Hospitalization)
  Sender: FDA-Public Use
  Company Number: US-MERCK-0509USA03254

PATIENT
  Age: 65 Year
  Sex: Female
  Weight: 121 kg

DRUGS (6)
  1. VIOXX [Suspect]
     Indication: ARTHRITIS
     Route: 048
     Dates: start: 20000717, end: 20020717
  2. VIOXX [Suspect]
     Route: 048
     Dates: start: 20040729, end: 20040930
  3. MULTIVITAMIN [Concomitant]
     Route: 065
  4. PREMARIN [Concomitant]
     Route: 065
  5. DARVOCET-N 100 [Concomitant]
     Route: 065
  6. TRUSOPT [Concomitant]
     Route: 065

REACTIONS (3)
  - ATRIAL FIBRILLATION [None]
  - DIVERTICULUM [None]
  - MYOCARDIAL INFARCTION [None]
